FAERS Safety Report 7931843-5 (Version None)
Quarter: 2011Q4

REPORT INFORMATION
  Report Type: 
  Country: None (occurrence: None)
  Receive Date: 20111121
  Receipt Date: 20111116
  Transmission Date: 20120403
  Serious: Yes (Other)
  Sender: FDA-Public Use
  Company Number: HU-ABBOTT-11P-076-0874745-00

PATIENT
  Sex: Male
  Weight: 60 kg

DRUGS (1)
  1. HUMIRA [Suspect]
     Indication: PSORIASIS
     Dosage: 80MG INITIAL DOSE, THEN 40MG
     Route: 058
     Dates: start: 20110118, end: 20110719

REACTIONS (3)
  - VON WILLEBRAND'S DISEASE [None]
  - BLOOD DISORDER [None]
  - SINUS POLYP [None]
